FAERS Safety Report 16307754 (Version 2)
Quarter: 2019Q2

REPORT INFORMATION
  Report Type: Report from Study
  Country: None (occurrence: BR)
  Receive Date: 20190514
  Receipt Date: 20190516
  Transmission Date: 20190711
  Serious: Yes (Disabling, Other)
  Sender: FDA-Public Use
  Company Number: BR-ABBVIE-19K-020-2777721-00

PATIENT
  Sex: Female
  Weight: 52 kg

DRUGS (1)
  1. HUMIRA [Suspect]
     Active Substance: ADALIMUMAB
     Indication: RHEUMATOID ARTHRITIS
     Route: 058
     Dates: start: 2018, end: 201812

REACTIONS (5)
  - Gait inability [Unknown]
  - Device material issue [Recovering/Resolving]
  - Joint swelling [Not Recovered/Not Resolved]
  - Suture related complication [Unknown]
  - Peripheral swelling [Not Recovered/Not Resolved]

NARRATIVE: CASE EVENT DATE: 2019
